FAERS Safety Report 11292957 (Version 1)
Quarter: 2015Q3

REPORT INFORMATION
  Report Type: Spontaneous
  Country: US (occurrence: US)
  Receive Date: 20150722
  Receipt Date: 20150722
  Transmission Date: 20151125
  Serious: No
  Sender: FDA-Public Use
  Company Number: US-DSJP-DSU-2015-113898

PATIENT
  Sex: Female

DRUGS (3)
  1. SAVAYSA [Suspect]
     Active Substance: EDOXABAN TOSYLATE
     Dosage: 60 MG, UNK
     Route: 048
     Dates: start: 201504, end: 20150503
  2. SAVAYSA [Suspect]
     Active Substance: EDOXABAN TOSYLATE
     Indication: PRODUCT USED FOR UNKNOWN INDICATION
     Dosage: 30 MG, UNK
     Route: 048
     Dates: end: 201504
  3. SAVAYSA [Suspect]
     Active Substance: EDOXABAN TOSYLATE
     Dosage: 30 MG, UNK
     Route: 048

REACTIONS (7)
  - Musculoskeletal pain [Unknown]
  - Gait disturbance [Unknown]
  - Visual acuity reduced [Unknown]
  - Joint swelling [Unknown]
  - Pain in extremity [Unknown]
  - Dry mouth [Unknown]
  - Back pain [Unknown]
